FAERS Safety Report 9637928 (Version 1)
Quarter: 2013Q4

REPORT INFORMATION
  Report Type: Report from Study
  Country: PL (occurrence: PL)
  Receive Date: 20131022
  Receipt Date: 20131022
  Transmission Date: 20140711
  Serious: Yes (Other)
  Sender: FDA-Public Use
  Company Number: PL-ROCHE-1288696

PATIENT
  Sex: 0

DRUGS (4)
  1. BEVACIZUMAB [Suspect]
     Indication: CONJUNCTIVAL BLEB
     Dosage: TOPICAL DROPS WERE TITRATED TO 5 MG/ML WITH STERILE SALINE
     Route: 061
  2. DEXAMETHASONE [Concomitant]
     Dosage: DECREASING DOSES FOR UP TO 6 WEEKS
     Route: 065
  3. OFTAQUIX [Concomitant]
     Route: 065
  4. ATROPINUM SULFURICUM [Concomitant]
     Dosage: FOR 10 DAYS
     Route: 061

REACTIONS (3)
  - Conjunctival filtering bleb leak [Unknown]
  - Treatment failure [Unknown]
  - Off label use [Unknown]
